FAERS Safety Report 23644583 (Version 1)
Quarter: 2024Q1

REPORT INFORMATION
  Report Type: Spontaneous
  Country: US (occurrence: None)
  Receive Date: 20240317
  Receipt Date: 20240317
  Transmission Date: 20240410
  Serious: Yes (Other)
  Sender: FDA-Public Use
  Company Number: None

PATIENT
  Age: 52 Year
  Sex: Female
  Weight: 72 kg

DRUGS (1)
  1. MONTELUKAST [Suspect]
     Active Substance: MONTELUKAST SODIUM
     Indication: Hypersensitivity
     Dosage: FREQUENCY : DAILY;?
     Route: 048
     Dates: start: 20240314, end: 20240316

REACTIONS (3)
  - Vision blurred [None]
  - Muscular weakness [None]
  - Gait disturbance [None]

NARRATIVE: CASE EVENT DATE: 20240314
